FAERS Safety Report 8523697-3 (Version None)
Quarter: 2012Q3

REPORT INFORMATION
  Report Type: 
  Country: None (occurrence: None)
  Receive Date: 20120720
  Receipt Date: 20120711
  Transmission Date: 20120928
  Serious: Yes (Hospitalization)
  Sender: FDA-Public Use
  Company Number: SE-JNJFOC-20101207301

PATIENT
  Age: 49 Year
  Sex: Female

DRUGS (3)
  1. REMICADE [Suspect]
     Indication: RHEUMATOID ARTHRITIS
     Route: 042
     Dates: start: 20050502, end: 20100416
  2. PREDNISOLONE [Concomitant]
     Dates: start: 20090112
  3. METHOTREXATE [Concomitant]
     Dates: start: 20090112

REACTIONS (1)
  - BREAST CANCER [None]
